FAERS Safety Report 8199625 (Version 2)
Quarter: 2014Q1

REPORT INFORMATION
  Report Type: Spontaneous
  Country: US (occurrence: US)
  Receive Date: 20111025
  Receipt Date: 20140106
  Transmission Date: 20141002
  Serious: Yes (Other)
  Sender: FDA-Public Use
  Company Number: PHEH2011US07128

PATIENT
  Sex: Male
  Weight: 59.1 kg

DRUGS (5)
  1. AREDIA [Suspect]
  2. DARVOCET [Concomitant]
  3. VENTOLINE [Concomitant]
  4. VICODIN [Concomitant]
  5. TYLENOL [Concomitant]

REACTIONS (12)
  - Chronic obstructive pulmonary disease [Unknown]
  - Emphysema [Unknown]
  - Lung hyperinflation [Unknown]
  - Osteoarthritis [Unknown]
  - Lymphadenopathy [Unknown]
  - Bronchitis [Unknown]
  - Bone neoplasm [Unknown]
  - Gastrooesophageal reflux disease [Unknown]
  - Chest pain [Unknown]
  - Back pain [Unknown]
  - Musculoskeletal pain [Unknown]
  - Muscle spasms [Unknown]
